FAERS Safety Report 9316316 (Version 1)
Quarter: 2013Q2

REPORT INFORMATION
  Report Type: Spontaneous
  Country: GB (occurrence: None)
  Receive Date: 20130522
  Receipt Date: 20130522
  Transmission Date: 20140414
  Serious: Yes (Life-Threatening)
  Sender: FDA-Public Use
  Company Number: AUR-APL-2013-03990

PATIENT
  Age: 48 Year
  Sex: Male
  Weight: 80 kg

DRUGS (4)
  1. MIRTAZAPINE (MIRTAZAPINE) [Suspect]
     Indication: DEPRESSION
     Route: 048
     Dates: start: 20130403, end: 20130408
  2. SIMVASTATIN (SIMVASTATIN) [Concomitant]
  3. VENLAFAXINE (VENLAFAXINE) [Concomitant]
  4. ZOPICLONE (ZOPICLONE) [Suspect]

REACTIONS (4)
  - Fear [None]
  - Agitation [None]
  - Hallucination, auditory [None]
  - Psychotic disorder [None]
